FAERS Safety Report 20983309 (Version 1)
Quarter: 2022Q2

REPORT INFORMATION
  Report Type: Spontaneous
  Country: US (occurrence: US)
  Receive Date: 20220620
  Receipt Date: 20220620
  Transmission Date: 20220721
  Serious: No
  Sender: FDA-Public Use
  Company Number: US-PROGENICS PHARMACEUTICALS, INC.-LMI-2022-00276

PATIENT
  Age: 68 Year
  Sex: Male
  Weight: 79 kg

DRUGS (6)
  1. PYLARIFY [Suspect]
     Active Substance: PIFLUFOLASTAT F-18
     Indication: Positron emission tomogram
     Dosage: 6.3 MILLICURIE
     Route: 042
     Dates: start: 20220223, end: 20220223
  2. VITAMIN D NOS [Concomitant]
     Active Substance: VITAMIN D NOS
     Indication: Product used for unknown indication
  3. VITAMIN B12 [Concomitant]
     Active Substance: CYANOCOBALAMIN
     Indication: Product used for unknown indication
  4. VITAMINS NOS [Concomitant]
     Active Substance: VITAMINS
     Indication: Product used for unknown indication
  5. HERBALS\SAW PALMETTO [Concomitant]
     Active Substance: HERBALS\SAW PALMETTO
     Indication: Product used for unknown indication
  6. TURMERIC [Concomitant]
     Active Substance: TURMERIC
     Indication: Product used for unknown indication

REACTIONS (2)
  - Product dispensing error [Unknown]
  - Product administration error [Unknown]

NARRATIVE: CASE EVENT DATE: 20220223
